FAERS Safety Report 6219059-4 (Version None)
Quarter: 2009Q2

REPORT INFORMATION
  Report Type: 
  Country: None (occurrence: None)
  Receive Date: 20090608
  Receipt Date: 20090602
  Transmission Date: 20091009
  Serious: Yes (Other)
  Sender: FDA-Public Use
  Company Number: US-GILEAD-2008-0018130

PATIENT
  Sex: Female
  Weight: 103.51 kg

DRUGS (19)
  1. LETAIRIS [Suspect]
     Indication: PULMONARY HYPERTENSION
     Route: 048
     Dates: start: 20080128, end: 20080828
  2. SILDENAFIL CITRATE [Concomitant]
  3. NORVASC [Concomitant]
     Indication: HYPERTENSION
  4. LABETALOL HCL [Concomitant]
     Indication: HYPERTENSION
  5. PLAVIX [Concomitant]
     Indication: PROPHYLAXIS
  6. PREDNISONE [Concomitant]
     Indication: SYSTEMIC LUPUS ERYTHEMATOSUS
  7. ZANTAC [Concomitant]
  8. HYDROCHLOROTHIAZIDE [Concomitant]
     Indication: HYPERTENSION
  9. CLONIDINE [Concomitant]
  10. LISINOPRIL [Concomitant]
  11. KLONOPIN [Concomitant]
  12. PLAQUENIL [Concomitant]
  13. HYDRALAZINE HYDROCHLORIDE [Concomitant]
  14. IMURAN [Concomitant]
  15. VITAMIN D [Concomitant]
     Indication: SYSTEMIC LUPUS ERYTHEMATOSUS
  16. VITAMIN D [Concomitant]
     Indication: OSTEOPOROSIS PROPHYLAXIS
  17. FOLIC ACID [Concomitant]
  18. SENNA [Concomitant]
  19. IRON [Concomitant]

REACTIONS (4)
  - HELLP SYNDROME [None]
  - HYPERTENSION [None]
  - PRE-ECLAMPSIA [None]
  - PREGNANCY [None]
